FAERS Safety Report 8448906-0 (Version None)
Quarter: 2012Q2

REPORT INFORMATION
  Report Type: 
  Country: None (occurrence: None)
  Receive Date: 20120619
  Receipt Date: 20120611
  Transmission Date: 20120825
  Serious: Yes (Death)
  Sender: FDA-Public Use
  Company Number: US-GLAXOSMITHKLINE-A0981563A

PATIENT
  Age: 51 Year
  Sex: Female

DRUGS (5)
  1. TYKERB [Suspect]
     Indication: BREAST CANCER
     Dosage: 1250MG PER DAY
     Route: 048
     Dates: start: 20110527, end: 20120311
  2. COUMADIN [Concomitant]
  3. SYNTHROID [Concomitant]
  4. FUROSEMIDE [Concomitant]
  5. PREVACID [Concomitant]

REACTIONS (1)
  - DEATH [None]
